FAERS Safety Report 14085380 (Version 5)
Quarter: 2017Q4

REPORT INFORMATION
  Report Type: Report from Study
  Country: CA (occurrence: CA)
  Receive Date: 20171013
  Receipt Date: 20171115
  Transmission Date: 20180321
  Serious: Yes (Hospitalization)
  Sender: FDA-Public Use
  Company Number: CA-ROCHE-2007591

PATIENT
  Age: 63 Year
  Sex: Male

DRUGS (11)
  1. ALENDRONATE [Concomitant]
     Active Substance: ALENDRONATE SODIUM
     Route: 065
  2. PREDNISONE. [Concomitant]
     Active Substance: PREDNISONE
     Route: 065
  3. RITUXAN [Suspect]
     Active Substance: RITUXIMAB
     Indication: VASCULITIS
  4. RITUXAN [Suspect]
     Active Substance: RITUXIMAB
     Indication: VASCULITIS
     Route: 042
     Dates: start: 20171013
  5. TOLOXIN (CANADA) [Concomitant]
     Route: 065
  6. WARFARIN [Concomitant]
     Active Substance: WARFARIN
  7. TRAMADOL. [Concomitant]
     Active Substance: TRAMADOL
  8. BISOPROLOL [Concomitant]
     Active Substance: BISOPROLOL
  9. PANTOPRAZOLE MAGNESIUM [Concomitant]
     Active Substance: PANTOPRAZOLE MAGNESIUM
     Route: 065
  10. MORPHINE [Concomitant]
     Active Substance: MORPHINE
     Route: 065
  11. RITUXAN [Suspect]
     Active Substance: RITUXIMAB
     Indication: GRANULOMA
     Route: 042
     Dates: start: 20171003

REACTIONS (3)
  - Headache [Not Recovered/Not Resolved]
  - Lethargy [Not Recovered/Not Resolved]
  - Haemoptysis [Recovered/Resolved]

NARRATIVE: CASE EVENT DATE: 20171005
